FAERS Safety Report 5167040-9 (Version None)
Quarter: 2006Q4

REPORT INFORMATION
  Report Type: 
  Country: None (occurrence: None)
  Receive Date: 20061129
  Receipt Date: 20061115
  Transmission Date: 20070319
  Serious: Yes (Disabling)
  Sender: FDA-Public Use
  Company Number: 2006-150704-NL

PATIENT
  Age: 43 Year
  Sex: Female

DRUGS (1)
  1. MIRTAZAPINE [Suspect]
     Indication: DEPRESSION
     Dosage: 15 MG QD
     Dates: start: 20060501

REACTIONS (3)
  - ECZEMA [None]
  - IMPAIRED WORK ABILITY [None]
  - OSTEOARTHRITIS [None]
